FAERS Safety Report 4618070-4 (Version None)
Quarter: 2005Q1

REPORT INFORMATION
  Report Type: 
  Country: None (occurrence: None)
  Receive Date: 20050324
  Receipt Date: 20050307
  Transmission Date: 20050727
  Serious: Yes (Hospitalization)
  Sender: FDA-Public Use
  Company Number: PHEH2005US02839

PATIENT
  Age: 71 Year
  Sex: Female

DRUGS (3)
  1. ZELNORM [Suspect]
     Indication: IRRITABLE BOWEL SYNDROME
     Dosage: 6 MG, BID
     Route: 048
     Dates: start: 20040901
  2. METAMUCIL-2 [Concomitant]
  3. MIRALAX [Concomitant]

REACTIONS (1)
  - ABDOMINAL PAIN UPPER [None]
